FAERS Safety Report 8008052-7 (Version None)
Quarter: 2011Q4

REPORT INFORMATION
  Report Type: 
  Country: None (occurrence: None)
  Receive Date: 20111227
  Receipt Date: 20111219
  Transmission Date: 20120403
  Serious: Yes (Other)
  Sender: FDA-Public Use
  Company Number: PHEH2011US010346

PATIENT
  Sex: Female
  Weight: 66.78 kg

DRUGS (2)
  1. ALIMTA [Concomitant]
     Indication: LUNG NEOPLASM MALIGNANT
     Dosage: 900 MG, EVERY 3 WEEKS
     Dates: start: 20110330, end: 20111012
  2. ZOMETA [Suspect]
     Indication: METASTASES TO BONE
     Dosage: 2 MG, EVERY 4 WEEKS
     Route: 042
     Dates: start: 20110330, end: 20111102

REACTIONS (4)
  - PAIN IN EXTREMITY [None]
  - BURNING SENSATION [None]
  - OEDEMA PERIPHERAL [None]
  - SKIN EXFOLIATION [None]
